FAERS Safety Report 7739875-7 (Version None)
Quarter: 2011Q3

REPORT INFORMATION
  Report Type: 
  Country: None (occurrence: None)
  Receive Date: 20110909
  Receipt Date: 20110902
  Transmission Date: 20111222
  Serious: Yes (Other)
  Sender: FDA-Public Use
  Company Number: PHHY2010CA26608

PATIENT
  Sex: Female
  Weight: 63.6 kg

DRUGS (13)
  1. VITAMIN D [Concomitant]
     Dosage: 400 IU, BID
  2. AMITRIPTYLINE HCL [Concomitant]
  3. PANTOPRAZOLE SODIUM [Concomitant]
     Dosage: 40 MG, UNK
  4. PLAVIX [Concomitant]
  5. ACETAMINOPHEN [Concomitant]
  6. ZOLEDRONOC ACID [Suspect]
     Indication: OSTEOPOROSIS
     Dosage: 5 MG,(YEARLY) UNK
     Route: 042
     Dates: start: 20091123
  7. DIDROCAL [Concomitant]
     Dosage: 400 MG, UNK
  8. HORMONES [Concomitant]
  9. CALCIUM CARBONATE [Concomitant]
     Dosage: 500 MG, BID
  10. LIPITOR [Concomitant]
     Dosage: 40 MG, UNK
  11. EVISTA [Concomitant]
     Dosage: 670 MG, UNK
  12. FORTEO [Concomitant]
  13. MIACALCIN [Concomitant]

REACTIONS (5)
  - INFLUENZA LIKE ILLNESS [None]
  - MYALGIA [None]
  - VENOUS OCCLUSION [None]
  - HEADACHE [None]
  - SKULL FRACTURE [None]
